FAERS Safety Report 18661225 (Version 2)
Quarter: 2021Q1

REPORT INFORMATION
  Report Type: Spontaneous
  Country: BR (occurrence: BR)
  Receive Date: 20201224
  Receipt Date: 20210111
  Transmission Date: 20210419
  Serious: Yes (Other)
  Sender: FDA-Public Use
  Company Number: BR-AMGEN-BRASP2020208906

PATIENT

DRUGS (1)
  1. BLINCYTO [Suspect]
     Active Substance: BLINATUMOMAB
     Indication: ACUTE LYMPHOCYTIC LEUKAEMIA RECURRENT
     Dosage: UNK
     Route: 065

REACTIONS (4)
  - Hypoxia [Unknown]
  - Pyrexia [Unknown]
  - Hallucination [Unknown]
  - Headache [Unknown]

NARRATIVE: CASE EVENT DATE: 20201220
